FAERS Safety Report 5918536-0 (Version None)
Quarter: 2008Q4

REPORT INFORMATION
  Report Type: 
  Country: None (occurrence: None)
  Receive Date: 20081014
  Receipt Date: 20081014
  Transmission Date: 20090506
  Serious: Yes (Other)
  Sender: FDA-Public Use
  Company Number: None

PATIENT
  Age: 56 Year
  Sex: Female
  Weight: 69.8539 kg

DRUGS (1)
  1. LYRICA [Suspect]
     Indication: PAIN
     Dates: start: 20080920, end: 20081003

REACTIONS (3)
  - LIP SWELLING [None]
  - NASAL DISORDER [None]
  - SWELLING FACE [None]
